FAERS Safety Report 8762346 (Version 2)
Quarter: 2012Q4

REPORT INFORMATION
  Report Type: 
  Country: IT (occurrence: IT)
  Receive Date: 20120830
  Receipt Date: 20120918
  Transmission Date: 20130627
  Serious: Yes (Hospitalization)
  Sender: FDA-Public Use
  Company Number: IT-PFIZER INC-2012212227

PATIENT
  Age: 58 Year
  Sex: Male

DRUGS (2)
  1. XANAX [Suspect]
     Dosage: 80 DF, single
     Route: 048
     Dates: start: 20120812, end: 20120812
  2. VALIUM [Suspect]
     Dosage: 10 mg, single
     Route: 048
     Dates: start: 20120812, end: 20120812

REACTIONS (5)
  - Intentional overdose [Recovered/Resolved]
  - Sopor [Recovered/Resolved]
  - Bradyphrenia [Recovered/Resolved]
  - Faecal incontinence [Recovered/Resolved]
  - Urinary incontinence [Recovered/Resolved]
